FAERS Safety Report 17049810 (Version 2)
Quarter: 2019Q4

REPORT INFORMATION
  Report Type: Spontaneous
  Country: US (occurrence: US)
  Receive Date: 20191119
  Receipt Date: 20191129
  Transmission Date: 20200122
  Serious: Yes (Other)
  Sender: FDA-Public Use
  Company Number: US-TEVA-2019-US-1138669

PATIENT
  Age: 61 Year
  Sex: Female

DRUGS (18)
  1. DOXORUBICIN LIPOSOME [Concomitant]
     Active Substance: DOXORUBICIN
     Indication: TRIPLE NEGATIVE BREAST CANCER
     Route: 065
     Dates: start: 201212, end: 201301
  2. CISPLATIN. [Concomitant]
     Active Substance: CISPLATIN
     Indication: TRIPLE NEGATIVE BREAST CANCER
     Dosage: FLAT DOSE; 4 DOSES
     Route: 065
     Dates: start: 201307, end: 201309
  3. GEMCITABINE. [Suspect]
     Active Substance: GEMCITABINE
     Indication: TRIPLE NEGATIVE BREAST CANCER
     Dosage: 4 DOSES
     Route: 065
     Dates: start: 201307, end: 201309
  4. CISPLATIN. [Concomitant]
     Active Substance: CISPLATIN
     Indication: TRIPLE NEGATIVE BREAST CANCER
     Route: 065
     Dates: start: 201302, end: 201307
  5. FLUOROURACIL. [Suspect]
     Active Substance: FLUOROURACIL
     Indication: TRIPLE NEGATIVE BREAST CANCER
     Dosage: 12 DOSES FOLLOWED BY 6 DOSES
     Route: 065
     Dates: start: 201207, end: 201301
  6. NAB-PACLITAXEL [Concomitant]
     Active Substance: PACLITAXEL
     Indication: TRIPLE NEGATIVE BREAST CANCER
     Dosage: 4 DOSES
     Route: 065
     Dates: start: 201307, end: 201309
  7. CISPLATIN. [Concomitant]
     Active Substance: CISPLATIN
     Indication: TRIPLE NEGATIVE BREAST CANCER
     Route: 065
     Dates: start: 201310, end: 201401
  8. VINORELBINE [Concomitant]
     Active Substance: VINORELBINE TARTRATE
     Indication: TRIPLE NEGATIVE BREAST CANCER
     Route: 065
     Dates: start: 201403, end: 201406
  9. INTERFERON-ALPHA-2B [Concomitant]
     Active Substance: INTERFERON ALFA-2B
     Route: 065
  10. OXALIPLATIN. [Suspect]
     Active Substance: OXALIPLATIN
     Indication: TRIPLE NEGATIVE BREAST CANCER
     Dosage: 45-50 MG/M2
     Route: 065
     Dates: start: 201401, end: 201403
  11. OXALIPLATIN. [Suspect]
     Active Substance: OXALIPLATIN
     Dosage: 4 DOSES
     Route: 065
     Dates: start: 201403, end: 201406
  12. ZOLEDRONIC ACID [Concomitant]
     Active Substance: ZOLEDRONIC ACID
     Indication: PROPHYLAXIS
     Route: 065
     Dates: end: 201406
  13. PACLITAXEL. [Concomitant]
     Active Substance: PACLITAXEL
     Indication: TRIPLE NEGATIVE BREAST CANCER
     Dosage: 50 - 60 MG/M2; 11 DOSES
     Route: 065
     Dates: start: 201212, end: 201301
  14. PACLITAXEL. [Concomitant]
     Active Substance: PACLITAXEL
     Indication: TRIPLE NEGATIVE BREAST CANCER
     Route: 065
     Dates: start: 201302, end: 201307
  15. FOLINIC ACID [Concomitant]
     Active Substance: LEUCOVORIN
     Indication: TRIPLE NEGATIVE BREAST CANCER
     Dosage: MINIMUM DOSE OF 40 MG
     Route: 065
     Dates: start: 201207, end: 201301
  16. ERIBULIN [Suspect]
     Active Substance: ERIBULIN
     Indication: TRIPLE NEGATIVE BREAST CANCER
     Dosage: 12 DOSES FOLLOWED BY 3 DOSES
     Route: 065
     Dates: start: 201310, end: 201403
  17. PACLITAXEL. [Concomitant]
     Active Substance: PACLITAXEL
     Indication: TRIPLE NEGATIVE BREAST CANCER
     Dosage: 12 DOSES
     Route: 065
     Dates: start: 201207, end: 201211
  18. CARBOPLATIN. [Concomitant]
     Active Substance: CARBOPLATIN
     Indication: TRIPLE NEGATIVE BREAST CANCER
     Dosage: AREA UNDER THE CURVE (AUC) 2.25; 12 DOSES
     Route: 065
     Dates: start: 201207, end: 201211

REACTIONS (4)
  - Anaemia [Unknown]
  - Cytopenia [Unknown]
  - Thrombocytopenia [Unknown]
  - Stomatitis [Unknown]
